FAERS Safety Report 12012677 (Version 1)
Quarter: 2016Q1

REPORT INFORMATION
  Report Type: Report from Study
  Country: UG (occurrence: UG)
  Receive Date: 20160205
  Receipt Date: 20160205
  Transmission Date: 20160526
  Serious: Yes (Other)
  Sender: FDA-Public Use
  Company Number: UG-ABBVIE-16P-165-1552260-00

PATIENT
  Age: 34 Year
  Sex: Female

DRUGS (6)
  1. EPIVIR [Suspect]
     Active Substance: LAMIVUDINE
     Dosage: SECOND COURSE, TAB/CA[S
     Route: 048
     Dates: start: 20121011
  2. EPIVIR [Suspect]
     Active Substance: LAMIVUDINE
     Indication: HIV INFECTION
     Dosage: ONE COURSE, TAB/CAPS
     Route: 048
     Dates: start: 20110404, end: 20121007
  3. TENOFOVIR DISOPROXIL FUMARATE. [Suspect]
     Active Substance: TENOFOVIR DISOPROXIL FUMARATE
     Dosage: SECOND COURSE, TAB/CAPS
     Route: 048
     Dates: start: 20121011
  4. KALETRA [Suspect]
     Active Substance: LOPINAVIR\RITONAVIR
     Indication: HIV INFECTION
     Dosage: ONE COURSE, TAB/CAPS
     Route: 048
     Dates: start: 20110404, end: 20121007
  5. KALETRA [Suspect]
     Active Substance: LOPINAVIR\RITONAVIR
     Dosage: SECOND COURSE, TAB/CAPS
     Route: 048
     Dates: start: 20121011
  6. TENOFOVIR DISOPROXIL FUMARATE. [Suspect]
     Active Substance: TENOFOVIR DISOPROXIL FUMARATE
     Indication: HIV INFECTION
     Dosage: FIRST COURSE, TAB/CAPS
     Route: 048
     Dates: start: 20110404, end: 20121007

REACTIONS (3)
  - Foetal death [Unknown]
  - Exposure during pregnancy [Unknown]
  - Abortion induced [Unknown]

NARRATIVE: CASE EVENT DATE: 20130104
